FAERS Safety Report 22008718 (Version 1)
Quarter: 2023Q1

REPORT INFORMATION
  Report Type: Report from Study
  Country: US (occurrence: US)
  Receive Date: 20230219
  Receipt Date: 20230219
  Transmission Date: 20230417
  Serious: Yes (Other)
  Sender: FDA-Public Use
  Company Number: US-BEH-2023155552

PATIENT
  Age: 70 Year
  Sex: Male

DRUGS (1)
  1. HIZENTRA [Suspect]
     Active Substance: HUMAN IMMUNOGLOBULIN G
     Indication: Chronic inflammatory demyelinating polyradiculoneuropathy
     Dosage: 10 GRAM, QW
     Route: 058
     Dates: start: 20230204, end: 202302

REACTIONS (8)
  - Cardiac disorder [Unknown]
  - Hypoaesthesia [Unknown]
  - Motor dysfunction [Unknown]
  - Fine motor skill dysfunction [Unknown]
  - Restless legs syndrome [Unknown]
  - No adverse event [Unknown]
  - Therapy change [Unknown]
  - Insurance issue [Unknown]

NARRATIVE: CASE EVENT DATE: 20230201
